FAERS Safety Report 8396070-9 (Version None)
Quarter: 2012Q2

REPORT INFORMATION
  Report Type: 
  Country: None (occurrence: None)
  Receive Date: 20120530
  Receipt Date: 20120522
  Transmission Date: 20120825
  Serious: Yes (Hospitalization, Other)
  Sender: FDA-Public Use
  Company Number: CA-ROCHE-632598

PATIENT
  Age: 65 Year
  Sex: Female
  Weight: 52 kg

DRUGS (20)
  1. NEURONTIN [Concomitant]
     Route: 048
  2. HYDROMORPHONE HCL [Concomitant]
     Indication: NON-HODGKIN'S LYMPHOMA STAGE IV
     Dosage: DRUG: HYDROMORPHONE CONTIN
     Route: 048
  3. LASIX [Concomitant]
     Indication: HYPERTENSION
     Dosage: FREQUENCY: 1 Q BREAKFAST
     Route: 048
  4. ELAVIL [Concomitant]
     Dosage: FREQUENCY: 1 X HS
     Route: 048
  5. COLACE [Concomitant]
     Indication: CONSTIPATION PROPHYLAXIS
     Dosage: FREQUENCY: 2 QAM/ 1QPM
     Route: 048
  6. ASPIRIN [Concomitant]
     Dosage: DRUG: ASAPHEN ENTERIC COATED; FORM: ENTERIC COATED
     Route: 048
  7. TYLENOL [Concomitant]
     Indication: PREMEDICATION
     Dosage: FREQUENCY: 2 X OD
     Route: 048
     Dates: start: 20081029, end: 20081029
  8. ZOFRAN [Concomitant]
     Indication: PREMEDICATION
     Route: 048
  9. ADVAIR DISKUS 100/50 [Concomitant]
     Indication: PULMONARY FUNCTION TEST DECREASED
     Dosage: FREQUENCY: 2 X BID
     Route: 055
  10. PANTOPRAZOLE SODIUM [Concomitant]
     Route: 048
  11. FLUDARA [Concomitant]
     Indication: CHEMOTHERAPY
     Dosage: FREQUENCY: DAY 1 + 3 EACH 28 DAY CYCLE
     Route: 042
  12. SENOKOT [Concomitant]
     Indication: CONSTIPATION PROPHYLAXIS
     Dosage: FREQUENCY: 2 X BID
     Route: 048
  13. SPIRIVA [Concomitant]
     Indication: PULMONARY FUNCTION TEST DECREASED
     Route: 055
  14. QUININE SULFATE [Concomitant]
     Dosage: FREQUENCY: 1 X HS
     Route: 048
  15. DILAUDID [Concomitant]
     Indication: NON-HODGKIN'S LYMPHOMA STAGE IV
     Dosage: FREQUENCY: 1 PRN- BREAKTHROUGH
     Route: 048
  16. BENADRYL [Concomitant]
     Indication: PREMEDICATION
     Route: 040
     Dates: start: 20081029, end: 20081029
  17. SOLU-CORTEF [Concomitant]
     Indication: PREMEDICATION
     Dosage: FREQUENCY: 1 X OD
     Route: 040
     Dates: start: 20081029, end: 20081029
  18. PREDNISONE TAB [Concomitant]
     Indication: PREMEDICATION
     Route: 048
     Dates: start: 20081028, end: 20081029
  19. RITUXAN [Suspect]
     Indication: NON-HODGKIN'S LYMPHOMA STAGE IV
     Dosage: FORM: INFUSION, FREQUENCY CYCLICAL.
     Route: 042
     Dates: start: 20081029, end: 20081029
  20. BACTRIM DS [Concomitant]
     Dosage: DOSAGE: 800/160; FREQUENCY: 1 X BID 3 X WK
     Route: 048

REACTIONS (8)
  - BRONCHOSPASM [None]
  - ERYTHEMA [None]
  - DYSPNOEA [None]
  - DYSPHAGIA [None]
  - OEDEMA PERIPHERAL [None]
  - NAUSEA [None]
  - TREMOR [None]
  - PAIN [None]
